FAERS Safety Report 9704418 (Version 3)
Quarter: 2014Q2

REPORT INFORMATION
  Report Type: Spontaneous
  Country: US (occurrence: US)
  Receive Date: 20131122
  Receipt Date: 20140605
  Transmission Date: 20141212
  Serious: No
  Sender: FDA-Public Use
  Company Number: US-BAYER-2013-142888

PATIENT
  Age: 50 Year
  Sex: Female
  Weight: 77.1 kg

DRUGS (4)
  1. ALEVE CAPLET [Suspect]
     Indication: BACK PAIN
     Dosage: 2 DF, BID
     Route: 048
     Dates: start: 201310
  2. ALEVE CAPLET [Suspect]
     Indication: NECK PAIN
  3. ALEVE CAPLET [Suspect]
     Indication: MIGRAINE
  4. BAYER ASPIRIN REGIMEN ADULT LOW STRENGTH [Concomitant]
     Indication: ISCHAEMIC HEART DISEASE PROPHYLAXIS
     Dosage: 1 DF, QD
     Route: 048
     Dates: start: 2011

REACTIONS (4)
  - Incorrect dose administered [None]
  - Off label use [None]
  - Off label use [None]
  - Therapeutic response changed [None]
